FAERS Safety Report 8615006-6 (Version None)
Quarter: 2012Q3

REPORT INFORMATION
  Report Type: 
  Country: None (occurrence: None)
  Receive Date: 20120823
  Receipt Date: 20120816
  Transmission Date: 20120928
  Serious: Yes (Death, Other)
  Sender: FDA-Public Use
  Company Number: PH-CELGENEUS-128-21880-12081842

PATIENT
  Age: 41 Year
  Sex: Female

DRUGS (1)
  1. REVLIMID [Suspect]
     Route: 048

REACTIONS (3)
  - CARDIO-RESPIRATORY ARREST [None]
  - ACUTE MYOCARDIAL INFARCTION [None]
  - ANAEMIA [None]
